FAERS Safety Report 20734670 (Version 1)
Quarter: 2022Q2

REPORT INFORMATION
  Report Type: Spontaneous
  Country: CN (occurrence: CN)
  Receive Date: 20220421
  Receipt Date: 20220421
  Transmission Date: 20220721
  Serious: Yes (Other)
  Sender: FDA-Public Use
  Company Number: CN-BAYER-2022A058358

PATIENT
  Age: 84 Year
  Sex: Female
  Weight: 45 kg

DRUGS (2)
  1. AVELOX [Suspect]
     Active Substance: MOXIFLOXACIN HYDROCHLORIDE
     Indication: Cough
     Dosage: 0.4 G, QD
     Route: 041
     Dates: start: 20220409, end: 20220409
  2. AVELOX [Suspect]
     Active Substance: MOXIFLOXACIN HYDROCHLORIDE
     Indication: Productive cough

REACTIONS (3)
  - Delirium [Recovering/Resolving]
  - Irritability [Recovering/Resolving]
  - Off label use [None]

NARRATIVE: CASE EVENT DATE: 20220409
